FAERS Safety Report 15821298 (Version 1)
Quarter: 2018Q4

REPORT INFORMATION
  Report Type: Spontaneous
  Country: US (occurrence: US)
  Receive Date: 20181217
  Receipt Date: 20181217
  Transmission Date: 20190205
  Serious: No
  Sender: FDA-Public Use
  Company Number: None

PATIENT
  Age: 67 Year
  Sex: Male
  Weight: 81.65 kg

DRUGS (1)
  1. OXYCODONE HCL 10 MG [Suspect]
     Active Substance: OXYCODONE HYDROCHLORIDE
     Indication: HEADACHE
     Dosage: ?          OTHER DOSE:10 MG TAKES 2;OTHER FREQUENCY:EVERY 6 HOURS;?
     Route: 048
     Dates: start: 20181128

REACTIONS (11)
  - Tremor [None]
  - Withdrawal syndrome [None]
  - Loss of consciousness [None]
  - Hyperhidrosis [None]
  - Body temperature fluctuation [None]
  - Nausea [None]
  - Pain [None]
  - Lacrimation increased [None]
  - Headache [None]
  - Product substitution issue [None]
  - Anxiety [None]

NARRATIVE: CASE EVENT DATE: 20181128
